FAERS Safety Report 4288729-X (Version None)
Quarter: 2004Q1

REPORT INFORMATION
  Report Type: 
  Country: None (occurrence: None)
  Receive Date: 20040205
  Receipt Date: 20040127
  Transmission Date: 20041129
  Serious: Yes (Hospitalization)
  Sender: FDA-Public Use
  Company Number: 2004CG00165

PATIENT
  Age: 73 Year
  Sex: Male

DRUGS (1)
  1. NEXIUM [Suspect]
     Dates: end: 20031116

REACTIONS (3)
  - ACUTE RESPIRATORY DISTRESS SYNDROME [None]
  - CONDITION AGGRAVATED [None]
  - PANCYTOPENIA [None]
